FAERS Safety Report 16125411 (Version 2)
Quarter: 2019Q2

REPORT INFORMATION
  Report Type: Spontaneous
  Country: US (occurrence: US)
  Receive Date: 20190327
  Receipt Date: 20190409
  Transmission Date: 20190711
  Serious: No
  Sender: FDA-Public Use
  Company Number: US-JNJFOC-20190304462

PATIENT
  Age: 61 Year
  Sex: Male

DRUGS (10)
  1. REMICADE [Suspect]
     Active Substance: INFLIXIMAB
     Indication: COLITIS ULCERATIVE
     Route: 042
     Dates: start: 20180826
  2. LISINOPRIL. [Concomitant]
     Active Substance: LISINOPRIL
     Indication: PROPHYLAXIS
     Route: 048
  3. WARFARIN [Concomitant]
     Active Substance: WARFARIN
     Route: 048
  4. LISINOPRIL. [Concomitant]
     Active Substance: LISINOPRIL
     Indication: PROPHYLAXIS
     Route: 048
  5. METFORMIN [Concomitant]
     Active Substance: METFORMIN HYDROCHLORIDE
     Indication: TYPE 2 DIABETES MELLITUS
     Route: 048
  6. GLIMEPIRIDE. [Concomitant]
     Active Substance: GLIMEPIRIDE
     Indication: TYPE 2 DIABETES MELLITUS
     Route: 048
  7. WARFARIN [Concomitant]
     Active Substance: WARFARIN
     Route: 048
  8. REMICADE [Suspect]
     Active Substance: INFLIXIMAB
     Indication: COLITIS ULCERATIVE
     Route: 042
  9. POTASSIUM NITRATE [Concomitant]
     Active Substance: POTASSIUM NITRATE
     Route: 048
  10. HYDROCHLOROTHIAZIDE. [Concomitant]
     Active Substance: HYDROCHLOROTHIAZIDE
     Indication: RENAL LITHIASIS PROPHYLAXIS
     Route: 048

REACTIONS (7)
  - Arthralgia [Not Recovered/Not Resolved]
  - Blood uric acid increased [Not Recovered/Not Resolved]
  - Tremor [Not Recovered/Not Resolved]
  - Ear pain [Not Recovered/Not Resolved]
  - Joint swelling [Not Recovered/Not Resolved]
  - Hypersensitivity [Unknown]
  - Nodule [Recovered/Resolved]

NARRATIVE: CASE EVENT DATE: 20181227
